FAERS Safety Report 5069442-8 (Version None)
Quarter: 2006Q3

REPORT INFORMATION
  Report Type: 
  Country: None (occurrence: None)
  Receive Date: 20060802
  Receipt Date: 20060802
  Transmission Date: 20061208
  Serious: Yes (Hospitalization)
  Sender: FDA-Public Use
  Company Number: None

PATIENT
  Age: 50 Year
  Sex: Male
  Weight: 88.4514 kg

DRUGS (2)
  1. FLUOROURACIL [Suspect]
     Indication: COLON CANCER
     Dosage: IVP (CYCLE 1, DAY 29)
     Route: 042
     Dates: start: 20060309
  2. LEUCOVORIN 40 MG [Suspect]
     Dosage: IVP
     Route: 042
     Dates: start: 20060309

REACTIONS (4)
  - BLOOD PRESSURE ORTHOSTATIC ABNORMAL [None]
  - DEHYDRATION [None]
  - NAUSEA [None]
  - VOMITING [None]
